FAERS Safety Report 18101827 (Version 2)
Quarter: 2021Q1

REPORT INFORMATION
  Report Type: Spontaneous
  Country: US (occurrence: US)
  Receive Date: 20200802
  Receipt Date: 20210217
  Transmission Date: 20210419
  Serious: Yes (Other)
  Sender: FDA-Public Use
  Company Number: US-ELI_LILLY_AND_COMPANY-US202007009210

PATIENT
  Age: 53 Year
  Sex: Female
  Weight: 88.44 kg

DRUGS (1)
  1. TALTZ [Suspect]
     Active Substance: IXEKIZUMAB
     Indication: PRODUCT USED FOR UNKNOWN INDICATION
     Dosage: 80 MG, MONTHLY (1/M)
     Route: 065
     Dates: start: 201806

REACTIONS (1)
  - HER2 negative breast cancer [Recovered/Resolved]

NARRATIVE: CASE EVENT DATE: 202007
